FAERS Safety Report 4699682-9 (Version None)
Quarter: 2005Q3

REPORT INFORMATION
  Report Type: 
  Country: None (occurrence: None)
  Receive Date: 20050623
  Receipt Date: 20050609
  Transmission Date: 20060218
  Serious: Yes (Death, Other)
  Sender: FDA-Public Use
  Company Number: 200502363

PATIENT
  Age: 18 Month
  Sex: Female

DRUGS (2)
  1. BOTOX [Suspect]
     Dosage: 50 UNITS ONCE IM
     Route: 030
  2. ANESTHESIA [Suspect]
     Indication: ANAESTHESIA

REACTIONS (1)
  - EPILEPSY [None]
